FAERS Safety Report 6326519-4 (Version None)
Quarter: 2009Q3

REPORT INFORMATION
  Report Type: 
  Country: None (occurrence: None)
  Receive Date: 20090821
  Receipt Date: 20090731
  Transmission Date: 20100115
  Serious: Yes (Life-Threatening, Hospitalization)
  Sender: FDA-Public Use
  Company Number: 2009080001

PATIENT
  Age: 69 Year
  Sex: Female

DRUGS (5)
  1. TORSEMIDE [Suspect]
     Indication: CARDIAC FAILURE
     Dosage: 8 MG (8 MG, 1 IN 1 D), ORAL
     Route: 048
     Dates: start: 20090527, end: 20090611
  2. ALDACTONE [Suspect]
     Indication: MITRAL VALVE INCOMPETENCE
     Dates: start: 20090413, end: 20090520
  3. MAGMITT (MAGNESIUM OXIDE) [Concomitant]
  4. WARFARIN (WARFARIN POTASSIUM) [Concomitant]
  5. LANSOPRAZOLE [Concomitant]

REACTIONS (15)
  - ALANINE AMINOTRANSFERASE INCREASED [None]
  - ANAEMIA [None]
  - BLOOD ALBUMIN DECREASED [None]
  - BLOOD CREATININE INCREASED [None]
  - BLOOD LACTATE DEHYDROGENASE INCREASED [None]
  - BLOOD UREA INCREASED [None]
  - BRAIN NATRIURETIC PEPTIDE INCREASED [None]
  - CARDIAC FAILURE [None]
  - CONDITION AGGRAVATED [None]
  - DRUG ERUPTION [None]
  - GENERALISED ERYTHEMA [None]
  - HAEMOGLOBIN DECREASED [None]
  - PNEUMONIA ASPIRATION [None]
  - PROTHROMBIN TIME PROLONGED [None]
  - RASH PUSTULAR [None]
